FAERS Safety Report 10071661 (Version 2)
Quarter: 2014Q2

REPORT INFORMATION
  Report Type: Spontaneous
  Country: CH (occurrence: CH)
  Receive Date: 20140411
  Receipt Date: 20140506
  Transmission Date: 20141212
  Serious: Yes (Hospitalization)
  Sender: FDA-Public Use
  Company Number: CH-ROCHE-1374868

PATIENT
  Age: 53 Year
  Sex: Female
  Weight: 60 kg

DRUGS (9)
  1. HERCEPTIN [Suspect]
     Indication: BREAST CANCER METASTATIC
     Route: 042
     Dates: start: 20070629, end: 20131106
  2. XELODA [Suspect]
     Indication: BREAST CANCER METASTATIC
     Route: 048
     Dates: start: 20131209, end: 20140113
  3. KADCYLA [Suspect]
     Indication: BREAST CANCER METASTATIC
     Route: 042
     Dates: start: 20140102, end: 20140305
  4. LAPATINIB [Suspect]
     Indication: BREAST CANCER METASTATIC
     Route: 065
     Dates: start: 20131209, end: 20140113
  5. FEMARA [Concomitant]
     Indication: BREAST CANCER METASTATIC
  6. AROMASIN [Concomitant]
     Indication: BREAST CANCER METASTATIC
  7. TAMOXIFEN [Concomitant]
     Indication: BREAST CANCER METASTATIC
  8. XGEVA [Concomitant]
     Indication: BREAST CANCER
     Route: 058
     Dates: start: 20130204, end: 20130918
  9. ZOMETA [Concomitant]
     Indication: METASTASES TO BONE
     Route: 042
     Dates: start: 20131209

REACTIONS (4)
  - Disease progression [Not Recovered/Not Resolved]
  - Spinal pain [Unknown]
  - Pneumonia [Unknown]
  - Bronchopneumonia [Unknown]
